FAERS Safety Report 19508673 (Version 3)
Quarter: 2021Q4

REPORT INFORMATION
  Report Type: Spontaneous
  Country: US (occurrence: US)
  Receive Date: 20210708
  Receipt Date: 20211217
  Transmission Date: 20220303
  Serious: Yes (Hospitalization)
  Sender: FDA-Public Use
  Company Number: US-PFIZER INC-2020217272

PATIENT
  Age: 74 Year
  Sex: Female

DRUGS (4)
  1. LYRICA [Suspect]
     Active Substance: PREGABALIN
     Indication: Pain
     Dosage: 75 MG, AS NEEDED (TAKE 1 CAPSULE (75 MG) BY MOUTH THREE TIMES DAILY AS NEEDED)
     Route: 048
  2. LYRICA [Suspect]
     Active Substance: PREGABALIN
     Dosage: 200 MG
  3. LYRICA [Suspect]
     Active Substance: PREGABALIN
     Dosage: 150 MG, AS NEEDED, (1 CAPSULE (150 MG) BY MOUTH TWICE DALLY AS NEEDED)
     Route: 048
  4. LYRICA [Suspect]
     Active Substance: PREGABALIN
     Dosage: 150 MG, 3X/DAY
     Route: 048

REACTIONS (2)
  - Hypoacusis [Unknown]
  - Dry throat [Unknown]
